FAERS Safety Report 20691129 (Version 1)
Quarter: 2022Q2

REPORT INFORMATION
  Report Type: Spontaneous
  Country: DK (occurrence: DK)
  Receive Date: 20220408
  Receipt Date: 20220408
  Transmission Date: 20220720
  Serious: Yes (Other)
  Sender: FDA-Public Use
  Company Number: None

PATIENT

DRUGS (1)
  1. CYCLOGYL [Suspect]
     Active Substance: CYCLOPENTOLATE HYDROCHLORIDE
     Indication: Ophthalmological examination
     Dosage: DOSAGE: ONE DROP 4 TIMES IN EACH EYE WITH UNKNOWN INTERVAL. STRENGTH: 10 MG/ML
     Route: 047
     Dates: start: 20210422, end: 20210422

REACTIONS (10)
  - Palpitations [Recovered/Resolved]
  - Amnesia [Not Recovered/Not Resolved]
  - Personality change [Not Recovered/Not Resolved]
  - Personality disorder [Not Recovered/Not Resolved]
  - Speech disorder [Recovered/Resolved]
  - Restlessness [Not Recovered/Not Resolved]
  - Psychotic disorder [Recovered/Resolved]
  - Gait disturbance [Recovered/Resolved]
  - Hallucination [Recovered/Resolved]
  - Photophobia [Recovered/Resolved]

NARRATIVE: CASE EVENT DATE: 20210422
